FAERS Safety Report 23631726 (Version 1)
Quarter: 2024Q1

REPORT INFORMATION
  Report Type: Spontaneous
  Country: GB (occurrence: GB)
  Receive Date: 20240314
  Receipt Date: 20240314
  Transmission Date: 20240409
  Serious: Yes (Other)
  Sender: FDA-Public Use
  Company Number: GB-Merck Healthcare KGaA-2024012955

PATIENT
  Sex: Male

DRUGS (4)
  1. SAIZEN [Suspect]
     Active Substance: SOMATROPIN
     Indication: Growth hormone deficiency
     Dosage: CARTRIDGES
     Route: 058
  2. SAIZEN [Suspect]
     Active Substance: SOMATROPIN
     Dosage: CARTRIDGES
     Route: 058
  3. SAIZEN [Suspect]
     Active Substance: SOMATROPIN
     Dosage: CARTRIDGES
     Route: 058
  4. ALGINIC ACID\ALUMINUM HYDROXIDE\MAGNESIUM TRISILICATE\SODIUM BICARBONA [Concomitant]
     Active Substance: ALGINIC ACID\ALUMINUM HYDROXIDE\MAGNESIUM TRISILICATE\SODIUM BICARBONATE
     Indication: Product used for unknown indication

REACTIONS (1)
  - Petit mal epilepsy [Unknown]
